FAERS Safety Report 11484372 (Version 1)
Quarter: 2015Q3

REPORT INFORMATION
  Report Type: Spontaneous
  Country: US (occurrence: US)
  Receive Date: 20150903
  Receipt Date: 20150903
  Transmission Date: 20151125
  Serious: No
  Sender: FDA-Public Use
  Company Number: US-ELI_LILLY_AND_COMPANY-US201207008790

PATIENT
  Age: 43 Year
  Sex: Female

DRUGS (1)
  1. CYMBALTA [Suspect]
     Active Substance: DULOXETINE HYDROCHLORIDE
     Indication: NEURALGIA
     Dosage: 60 MG, QD

REACTIONS (16)
  - Irritability [Unknown]
  - Headache [Unknown]
  - Insomnia [Unknown]
  - Nausea [Unknown]
  - Mental disorder [Unknown]
  - Feeling abnormal [Unknown]
  - Abnormal dreams [Unknown]
  - Anxiety [Unknown]
  - Somnolence [Unknown]
  - Abdominal distension [Unknown]
  - Product quality issue [Unknown]
  - Menstrual disorder [Unknown]
  - Restlessness [Unknown]
  - Nervousness [Unknown]
  - Fatigue [Unknown]
  - Abdominal pain upper [Unknown]

NARRATIVE: CASE EVENT DATE: 20120709
